FAERS Safety Report 4889482-9 (Version None)
Quarter: 2006Q1

REPORT INFORMATION
  Report Type: 
  Country: None (occurrence: None)
  Receive Date: 20060120
  Receipt Date: 20060112
  Transmission Date: 20060701
  Serious: Yes (Hospitalization, Other)
  Sender: FDA-Public Use
  Company Number: TCI2005A04836

PATIENT
  Age: 56 Year
  Sex: Male

DRUGS (3)
  1. PIOGLITAZONE HCL [Suspect]
     Indication: DIABETES MELLITUS NON-INSULIN-DEPENDENT
     Dosage: 15 MG (15 MG, 1 IN 1 D) PER ORAL
     Route: 048
     Dates: start: 20021126, end: 20030217
  2. GLIMICRON                 (GLICLAZIDE) [Concomitant]
  3. PRAVASTATIN [Concomitant]

REACTIONS (3)
  - ADENOCARCINOMA [None]
  - GASTRIC CANCER [None]
  - TUMOUR INVASION [None]
